APPROVED DRUG PRODUCT: METFORMIN HYDROCHLORIDE
Active Ingredient: METFORMIN HYDROCHLORIDE
Strength: 1GM
Dosage Form/Route: TABLET;ORAL
Application: A090888 | Product #003 | TE Code: AB
Applicant: MARKSANS PHARMA LTD
Approved: Mar 12, 2012 | RLD: No | RS: No | Type: RX